FAERS Safety Report 5471018-5 (Version None)
Quarter: 2007Q3

REPORT INFORMATION
  Report Type: 
  Country: None (occurrence: None)
  Receive Date: 20070928
  Receipt Date: 20070920
  Transmission Date: 20080115
  Serious: Yes (Other)
  Sender: FDA-Public Use
  Company Number: B0485388A

PATIENT
  Age: 34 Year
  Sex: Female
  Weight: 65 kg

DRUGS (3)
  1. FLOLAN [Suspect]
     Indication: PULMONARY HYPERTENSION
     Dosage: 14NGM UNKNOWN
     Route: 065
     Dates: start: 20070322, end: 20070908
  2. WARFARIN [Concomitant]
     Route: 048
  3. BOSENTAN [Concomitant]
     Indication: PULMONARY HYPERTENSION
     Dosage: 125MG TWICE PER DAY
     Dates: start: 20070301

REACTIONS (1)
  - THROMBOSIS [None]
